FAERS Safety Report 5266923-9 (Version None)
Quarter: 2007Q1

REPORT INFORMATION
  Report Type: 
  Country: None (occurrence: None)
  Receive Date: 20070312
  Receipt Date: 20070306
  Transmission Date: 20070707
  Serious: Yes (Death, Hospitalization)
  Sender: FDA-Public Use
  Company Number: 163-21880-06110185

PATIENT
  Age: 75 Year
  Sex: Male

DRUGS (10)
  1. REVLIMID [Suspect]
     Indication: MULTIPLE MYELOMA
     Dosage: 25 MG, DAILY, ORAL
     Route: 048
     Dates: start: 20060912, end: 20061002
  2. PROZAC [Concomitant]
  3. MORPHINE [Concomitant]
  4. DEXAMETHASONE TAB [Concomitant]
  5. CIPRO [Concomitant]
  6. PRILOSEC [Concomitant]
  7. FELODIPINE [Concomitant]
  8. DOCUSATE (DOCUSATE) [Concomitant]
  9. FERROUS SULFATE TAB [Concomitant]
  10. SENNA (SENNA) [Concomitant]

REACTIONS (7)
  - ANAEMIA [None]
  - DEHYDRATION [None]
  - FATIGUE [None]
  - HYPERCALCAEMIA [None]
  - MALIGNANT NEOPLASM PROGRESSION [None]
  - MULTIPLE MYELOMA [None]
  - PNEUMONIA [None]
